FAERS Safety Report 25835181 (Version 1)
Quarter: 2025Q3

REPORT INFORMATION
  Report Type: Spontaneous
  Country: EU (occurrence: EU)
  Receive Date: 20250923
  Receipt Date: 20250923
  Transmission Date: 20251021
  Serious: Yes (Hospitalization, Other)
  Sender: RANBAXY
  Company Number: EU-BFARM-25004002

PATIENT
  Age: 68 Year
  Sex: Male

DRUGS (9)
  1. OLANZAPINE [Suspect]
     Active Substance: OLANZAPINE
     Indication: Product used for unknown indication
     Dosage: 5 MILLIGRAM, DAILY
     Route: 048
     Dates: start: 20250107, end: 20250108
  2. OLANZAPINE [Suspect]
     Active Substance: OLANZAPINE
     Dosage: 10 MILLIGRAM, DAILY
     Route: 048
     Dates: start: 20250109
  3. OLANZAPINE [Suspect]
     Active Substance: OLANZAPINE
     Dosage: 15 MILLIGRAM, DAILY
     Route: 048
     Dates: start: 20250110, end: 20250112
  4. SERTRALINE [Suspect]
     Active Substance: SERTRALINE HYDROCHLORIDE
     Indication: Product used for unknown indication
     Dosage: 150 MILLIGRAM, DAILY
     Route: 048
     Dates: start: 20241202, end: 20250113
  5. ELIQUIS [Concomitant]
     Active Substance: APIXABAN
     Indication: Anticoagulant therapy
     Dosage: FOR ABOUT 1 YEAR - B.A.W.
     Route: 048
  6. PANTOPRAZOLE [Concomitant]
     Active Substance: PANTOPRAZOLE
     Indication: Gastrointestinal disorder therapy
     Dosage: FOR ABOUT 1 YEAR - B.A.W.
     Route: 048
  7. INDAPAMIDE [Concomitant]
     Active Substance: INDAPAMIDE
     Indication: Drug therapy
     Dosage: FOR ABOUT 1 YEAR - B.A.W.
     Route: 048
  8. BISOPROLOL FUMARATE [Concomitant]
     Active Substance: BISOPROLOL FUMARATE
     Indication: Drug therapy
     Dosage: FOR ABOUT 1 YEAR - B.A.W.
     Route: 048
  9. ALLOPURINOL [Concomitant]
     Active Substance: ALLOPURINOL
     Indication: Gout
     Dosage: FOR ABOUT 1 YEAR - B.A.W.
     Route: 048

REACTIONS (16)
  - Neuroleptic malignant syndrome [Recovered/Resolved]
  - Disorientation [Recovered/Resolved]
  - Hallucinations, mixed [Recovered/Resolved]
  - Agitation [Recovered/Resolved]
  - Cold sweat [Recovered/Resolved]
  - Pyrexia [Recovered/Resolved]
  - Apraxia [Recovered/Resolved]
  - Resting tremor [Recovered/Resolved]
  - Intention tremor [Recovered/Resolved]
  - Postural tremor [Recovered/Resolved]
  - Dysarthria [Recovered/Resolved]
  - Chills [Recovered/Resolved]
  - Blood creatine phosphokinase increased [Recovered/Resolved]
  - Hypernatraemia [Recovered/Resolved]
  - Hypokalaemia [Recovered/Resolved]
  - Serotonin syndrome [Unknown]

NARRATIVE: CASE EVENT DATE: 20250112
